FAERS Safety Report 12597841 (Version 1)
Quarter: 2016Q3

REPORT INFORMATION
  Report Type: Spontaneous
  Country: IT (occurrence: IT)
  Receive Date: 20160727
  Receipt Date: 20160727
  Transmission Date: 20161109
  Serious: Yes (Life-Threatening, Hospitalization)
  Sender: FDA-Public Use
  Company Number: IT-NOVOPROD-502095

PATIENT
  Age: 26 Year
  Sex: Female

DRUGS (6)
  1. TAPAZOLE [Suspect]
     Active Substance: METHIMAZOLE
     Indication: BASEDOW^S DISEASE
     Dosage: 4 TAB, QD
     Route: 065
     Dates: start: 20151104
  2. NOVORAPID [Suspect]
     Active Substance: INSULIN ASPART
     Indication: GESTATIONAL DIABETES
     Dosage: 10 U
     Route: 065
     Dates: start: 20160415, end: 20160505
  3. TAPAZOLE [Suspect]
     Active Substance: METHIMAZOLE
     Dosage: 3 TAB, QD
     Route: 065
  4. TAPAZOLE [Suspect]
     Active Substance: METHIMAZOLE
     Dosage: 2 TAB, QD
     Route: 065
     Dates: start: 20160310, end: 20160508
  5. HUMALOG [Suspect]
     Active Substance: INSULIN LISPRO
     Indication: GESTATIONAL DIABETES
     Dosage: 8 U
     Route: 065
     Dates: start: 20160302, end: 20160508
  6. TACHIPIRINA [Suspect]
     Active Substance: ACETAMINOPHEN
     Indication: PYREXIA
     Dosage: 1 G
     Route: 065
     Dates: start: 20160502, end: 20160504

REACTIONS (2)
  - Acute hepatic failure [Recovered/Resolved]
  - Exposure during pregnancy [Recovered/Resolved]

NARRATIVE: CASE EVENT DATE: 20160415
